FAERS Safety Report 5812350-2 (Version None)
Quarter: 2008Q3

REPORT INFORMATION
  Report Type: 
  Country: None (occurrence: None)
  Receive Date: 20080716
  Receipt Date: 20080711
  Transmission Date: 20090109
  Serious: Yes (Death, Hospitalization, Other)
  Sender: FDA-Public Use
  Company Number: GB-PFIZER INC-2006144490

PATIENT
  Age: 48 Year
  Sex: Male
  Weight: 118 kg

DRUGS (5)
  1. SERTRALINE [Suspect]
     Indication: DEPRESSION
     Route: 048
     Dates: start: 20060314, end: 20060728
  2. ATORVASTATIN CALCIUM [Suspect]
     Route: 048
  3. QUETIAPINE FUMARATE [Suspect]
     Route: 048
  4. ALL OTHER THERAPEUTIC PRODUCTS [Suspect]
  5. ARIPIPRAZOLE [Concomitant]
     Indication: SCHIZOPHRENIA
     Route: 048

REACTIONS (4)
  - HEPATIC FAILURE [None]
  - HEPATIC STEATOSIS [None]
  - OEDEMA [None]
  - PULMONARY CONGESTION [None]
